FAERS Safety Report 15104699 (Version 1)
Quarter: 2018Q3

REPORT INFORMATION
  Report Type: Spontaneous
  Country: US (occurrence: US)
  Receive Date: 20180703
  Receipt Date: 20180703
  Transmission Date: 20181010
  Serious: No
  Sender: FDA-Public Use
  Company Number: US-BAUSCH-BL-2017-028290

PATIENT
  Sex: Female

DRUGS (6)
  1. LOTEMAX [Suspect]
     Active Substance: LOTEPREDNOL ETABONATE
     Indication: POSTOPERATIVE CARE
     Dosage: ONE DROP IN THE RIGHT EYE
     Route: 047
     Dates: start: 20170918
  2. BESIVANCE [Suspect]
     Active Substance: BESIFLOXACIN
     Dosage: ONE DROP IN THE LEFT EYE
     Route: 047
     Dates: start: 20170925
  3. LOTEMAX [Suspect]
     Active Substance: LOTEPREDNOL ETABONATE
     Dosage: ONE DROP IN THE LEFT EYE
     Route: 047
     Dates: start: 20170925
  4. PROLENSA [Suspect]
     Active Substance: BROMFENAC SODIUM
     Dosage: ONE DROP IN THE LEFT EYE
     Route: 047
     Dates: start: 20170925
  5. PROLENSA [Suspect]
     Active Substance: BROMFENAC SODIUM
     Indication: POSTOPERATIVE CARE
     Dosage: ONE DROP IN THE RIGHT EYE
     Route: 047
     Dates: start: 20170918
  6. BESIVANCE [Suspect]
     Active Substance: BESIFLOXACIN
     Indication: POSTOPERATIVE CARE
     Dosage: ONE DROP IN THE RIGHT EYE
     Route: 047
     Dates: start: 20170918

REACTIONS (5)
  - Off label use [Unknown]
  - Abnormal sensation in eye [Not Recovered/Not Resolved]
  - Product storage error [Unknown]
  - Vision blurred [Not Recovered/Not Resolved]
  - Treatment noncompliance [Unknown]

NARRATIVE: CASE EVENT DATE: 20170918
